FAERS Safety Report 24903662 (Version 1)
Quarter: 2025Q1

REPORT INFORMATION
  Report Type: Spontaneous
  Country: US (occurrence: US)
  Receive Date: 20250130
  Receipt Date: 20250130
  Transmission Date: 20250409
  Serious: No
  Sender: Haleon PLC
  Company Number: US-HALEON-2225545

PATIENT
  Age: 39 Year
  Sex: Male

DRUGS (5)
  1. IBUPROFEN [Suspect]
     Active Substance: IBUPROFEN
     Indication: Malaise
  2. IBUPROFEN [Suspect]
     Active Substance: IBUPROFEN
     Indication: Oropharyngeal pain
  3. IBUPROFEN [Suspect]
     Active Substance: IBUPROFEN
     Indication: Chest discomfort
  4. IBUPROFEN [Suspect]
     Active Substance: IBUPROFEN
     Indication: Night sweats
  5. IBUPROFEN [Suspect]
     Active Substance: IBUPROFEN
     Indication: Productive cough

REACTIONS (1)
  - Drug ineffective [Unknown]
